FAERS Safety Report 16571647 (Version 1)
Quarter: 2019Q3

REPORT INFORMATION
  Report Type: Spontaneous
  Country: DE (occurrence: DE)
  Receive Date: 20190715
  Receipt Date: 20190715
  Transmission Date: 20191004
  Serious: Yes (Other)
  Sender: FDA-Public Use
  Company Number: DE-PFIZER INC-2019297345

PATIENT
  Age: 73 Year
  Sex: Female

DRUGS (8)
  1. MONO-EMBOLEX MULTI [Suspect]
     Active Substance: CERTOPARIN SODIUM
     Dosage: UNK
     Dates: start: 2013
  2. CIPROFLOXACIN. [Suspect]
     Active Substance: CIPROFLOXACIN
     Dosage: UNK
  3. MONO-EMBOLEX MULTI [Suspect]
     Active Substance: CERTOPARIN SODIUM
     Dosage: 1 DF, 1X/DAY
     Dates: start: 20101001, end: 20101008
  4. ACETYLSALICYLIC ACID [Suspect]
     Active Substance: ASPIRIN
     Indication: ISCHAEMIC HEART DISEASE PROPHYLAXIS
     Dosage: UNK
     Dates: end: 2013
  5. PRASUGREL. [Suspect]
     Active Substance: PRASUGREL
     Dosage: UNK
  6. MONO-EMBOLEX MULTI [Suspect]
     Active Substance: CERTOPARIN SODIUM
     Indication: ATRIAL FIBRILLATION
     Dosage: 3000 IU, UNK
  7. MONO-EMBOLEX MULTI [Suspect]
     Active Substance: CERTOPARIN SODIUM
     Indication: THROMBOPHLEBITIS
     Dosage: 1 DF, 1X/DAY
     Dates: start: 20101105, end: 20101110
  8. MONO-EMBOLEX MULTI [Suspect]
     Active Substance: CERTOPARIN SODIUM
     Dosage: 1 DF, 1X/DAY
     Dates: start: 20101024, end: 20101031

REACTIONS (10)
  - Laboratory test abnormal [Unknown]
  - Off label use [Unknown]
  - Activated partial thromboplastin time prolonged [Unknown]
  - Prothrombin time prolonged [Unknown]
  - Thrombosis [Unknown]
  - Factor V inhibition [Unknown]
  - Myocardial infarction [Unknown]
  - Prothrombin time shortened [Unknown]
  - Coagulation factor V level decreased [Unknown]
  - Haemorrhage [Unknown]

NARRATIVE: CASE EVENT DATE: 2010
